FAERS Safety Report 5002070-9 (Version None)
Quarter: 2006Q2

REPORT INFORMATION
  Report Type: 
  Country: None (occurrence: None)
  Receive Date: 20060515
  Receipt Date: 20060508
  Transmission Date: 20061013
  Serious: Yes (Hospitalization)
  Sender: FDA-Public Use
  Company Number: US-MERCK-0605USA01597

PATIENT
  Age: 91 Year
  Sex: Female
  Weight: 48 kg

DRUGS (1)
  1. VIOXX [Suspect]
     Indication: MIGRAINE
     Route: 048
     Dates: start: 20020801, end: 20030501

REACTIONS (1)
  - CEREBROVASCULAR ACCIDENT [None]
